FAERS Safety Report 10255802 (Version 3)
Quarter: 2014Q3

REPORT INFORMATION
  Report Type: Report from Study
  Country: JP (occurrence: JP)
  Receive Date: 20140624
  Receipt Date: 20140919
  Transmission Date: 20150326
  Serious: Yes (Other)
  Sender: FDA-Public Use
  Company Number: JP-BAYER-2014-090818

PATIENT
  Age: 77 Year
  Sex: Male
  Weight: 69 kg

DRUGS (5)
  1. KERATINAMIN [Concomitant]
     Active Substance: UREA
     Indication: DRUG TOXICITY PROPHYLAXIS
     Dosage: UNK
     Route: 061
     Dates: start: 20140319, end: 20140430
  2. STIVARGA [Suspect]
     Active Substance: REGORAFENIB
     Indication: COLON CANCER
     Dosage: 80 MG, QD
     Route: 048
     Dates: start: 20140423, end: 20140430
  3. DIOVAN [Concomitant]
     Active Substance: VALSARTAN
     Indication: HYPERTENSION
     Dosage: DAILY DOSE 80 MG
     Route: 048
     Dates: start: 20140319
  4. STIVARGA [Suspect]
     Active Substance: REGORAFENIB
     Indication: COLON CANCER
     Dosage: 120 MG QD
     Route: 048
     Dates: start: 20140408, end: 20140416
  5. ADALAT-L [Concomitant]
     Indication: HYPERTENSION
     Dosage: DAILY DOSE 40 MG
     Route: 048
     Dates: start: 20140319

REACTIONS (9)
  - Diarrhoea [Recovering/Resolving]
  - Epistaxis [Recovered/Resolved]
  - Dysphonia [Recovered/Resolved]
  - Hypertension [Recovered/Resolved]
  - Blood creatinine increased [Recovered/Resolved]
  - Alanine aminotransferase increased [Recovering/Resolving]
  - Vomiting [Recovered/Resolved]
  - Febrile neutropenia [Recovered/Resolved]
  - Aspartate aminotransferase increased [Recovering/Resolving]

NARRATIVE: CASE EVENT DATE: 20140410
